FAERS Safety Report 6608813-2 (Version None)
Quarter: 2010Q1

REPORT INFORMATION
  Report Type: 
  Country: None (occurrence: None)
  Receive Date: 20100301
  Receipt Date: 20090505
  Transmission Date: 20100710
  Serious: Yes (Death, Other)
  Sender: FDA-Public Use
  Company Number: PHEH2009US18940

PATIENT
  Sex: Male

DRUGS (5)
  1. EXJADE [Suspect]
     Indication: MYELOFIBROSIS
     Dosage: 1500MG, DAILY
     Route: 048
  2. EXJADE [Suspect]
     Indication: IRON OVERLOAD
  3. ATENOLOL [Concomitant]
     Dosage: 50 MG, DAILY
     Route: 048
  4. PROTONIX [Concomitant]
     Dosage: 40 MG, /DAY
     Route: 048
  5. LASIX [Concomitant]
     Dosage: 80 MG, QD
     Route: 048

REACTIONS (2)
  - DISEASE PROGRESSION [None]
  - FALL [None]
